FAERS Safety Report 19038456 (Version 2)
Quarter: 2021Q2

REPORT INFORMATION
  Report Type: Spontaneous
  Country: CA (occurrence: CA)
  Receive Date: 20210322
  Receipt Date: 20210428
  Transmission Date: 20210717
  Serious: No
  Sender: FDA-Public Use
  Company Number: CA-PFIZER INC-2021257789

PATIENT
  Age: 72 Year
  Sex: Female

DRUGS (2)
  1. IBRANCE [Suspect]
     Active Substance: PALBOCICLIB
     Dosage: UNK
     Dates: start: 20190808
  2. FULVESTRANT. [Concomitant]
     Active Substance: FULVESTRANT
     Dosage: DISCONTINUED

REACTIONS (1)
  - Neoplasm progression [Unknown]
